FAERS Safety Report 4537212-2 (Version None)
Quarter: 2004Q4

REPORT INFORMATION
  Report Type: 
  Country: None (occurrence: None)
  Receive Date: 20041221
  Receipt Date: 20041203
  Transmission Date: 20050328
  Serious: Yes (Hospitalization)
  Sender: FDA-Public Use
  Company Number: A-US2004-08293

PATIENT
  Age: 80 Year
  Sex: Male

DRUGS (1)
  1. TRACLEER [Suspect]
     Indication: PULMONARY HYPERTENSION
     Dosage: ORAL
     Route: 048
     Dates: start: 20041001

REACTIONS (6)
  - BRONCHITIS [None]
  - DYSPNOEA [None]
  - EOSINOPHIL COUNT INCREASED [None]
  - HAEMOPTYSIS [None]
  - HYPERSENSITIVITY [None]
  - PULMONARY FIBROSIS [None]
